FAERS Safety Report 12340747 (Version 1)
Quarter: 2016Q2

REPORT INFORMATION
  Report Type: Spontaneous
  Country: US (occurrence: None)
  Receive Date: 20160505
  Receipt Date: 20160505
  Transmission Date: 20160815
  Serious: Yes (Disabling)
  Sender: FDA-Public Use
  Company Number: None

PATIENT
  Age: 10 Year
  Sex: Male
  Weight: 29.48 kg

DRUGS (6)
  1. CONCERTA [Concomitant]
     Active Substance: METHYLPHENIDATE HYDROCHLORIDE
  2. DOXEPIN [Concomitant]
     Active Substance: DOXEPIN
  3. ABILIFY [Suspect]
     Active Substance: ARIPIPRAZOLE
     Indication: IRRITABILITY
     Route: 048
  4. METHYLFOLATE [Concomitant]
  5. INTUNIV [Concomitant]
     Active Substance: GUANFACINE HYDROCHLORIDE
  6. METAPROPOL [Concomitant]

REACTIONS (4)
  - Dystonia [None]
  - Educational problem [None]
  - Social problem [None]
  - Compulsive shopping [None]
